FAERS Safety Report 7732222-6 (Version None)
Quarter: 2011Q3

REPORT INFORMATION
  Report Type: 
  Country: None (occurrence: None)
  Receive Date: 20110906
  Receipt Date: 20110823
  Transmission Date: 20111222
  Serious: No
  Sender: FDA-Public Use
  Company Number: US-AMGEN-USASP2011042935

PATIENT
  Age: 82 Year
  Sex: Female

DRUGS (6)
  1. PROLIA [Suspect]
     Indication: OSTEOPOROSIS POSTMENOPAUSAL
     Dosage: 60 MG, Q6MO
     Dates: start: 20110817
  2. CALCIUM WITH VITAMIN D             /00944201/ [Concomitant]
     Dosage: 2 MG, QD
  3. LIPITOR [Concomitant]
  4. ANTIHYPERTENSIVES [Concomitant]
     Indication: BLOOD PRESSURE ABNORMAL
  5. BIOTIN [Concomitant]
     Indication: NAIL DISORDER
  6. CENTRUM SILVER                     /01292501/ [Concomitant]

REACTIONS (4)
  - NASOPHARYNGITIS [None]
  - COUGH [None]
  - OROPHARYNGEAL DISCOMFORT [None]
  - ASTHENIA [None]
